FAERS Safety Report 14874528 (Version 1)
Quarter: 2018Q2

REPORT INFORMATION
  Report Type: Spontaneous
  Country: US (occurrence: US)
  Receive Date: 20180510
  Receipt Date: 20180510
  Transmission Date: 20180711
  Serious: Yes (Other)
  Sender: FDA-Public Use
  Company Number: US-PFIZER INC-2018190978

PATIENT
  Age: 57 Year
  Sex: Male

DRUGS (3)
  1. SULFAMETHOXAZOLE/TRIMETHOPRIM [Suspect]
     Active Substance: SULFAMETHOXAZOLE\TRIMETHOPRIM
     Indication: DERMATITIS ACNEIFORM
     Dosage: UNK
  2. ERLOTINIB [Concomitant]
     Active Substance: ERLOTINIB
     Dosage: 100 MG, DAILY
  3. ERLOTINIB [Concomitant]
     Active Substance: ERLOTINIB
     Indication: EGFR GENE MUTATION
     Dosage: 150 MG, DAILY (WITHOUT FOOD OR ON AN EMPTY STOMACH 1 H BEFORE OR 2 H AFTER FOOD)
     Route: 048

REACTIONS (1)
  - Klebsiella infection [Recovered/Resolved]
